FAERS Safety Report 5485295-8 (Version None)
Quarter: 2007Q4

REPORT INFORMATION
  Report Type: 
  Country: None (occurrence: None)
  Receive Date: 20071010
  Receipt Date: 20071010
  Transmission Date: 20080405
  Serious: Yes (Hospitalization)
  Sender: FDA-Public Use
  Company Number: None

PATIENT
  Age: 71 Year
  Sex: Female

DRUGS (1)
  1. REOPRO [Suspect]
     Indication: STENT PLACEMENT
     Route: 041
     Dates: start: 20070914, end: 20070914

REACTIONS (1)
  - THROMBOCYTOPENIA [None]
